FAERS Safety Report 21139454 (Version 5)
Quarter: 2025Q3

REPORT INFORMATION
  Report Type: Report from Study
  Country: US (occurrence: US)
  Receive Date: 20220727
  Receipt Date: 20250710
  Transmission Date: 20251021
  Serious: Yes (Hospitalization)
  Sender: JAZZ
  Company Number: US-GW PHARMA-2022-US-024309

PATIENT
  Age: 3 Year
  Sex: Female
  Weight: 18 kg

DRUGS (2)
  1. EPIDIOLEX [Suspect]
     Active Substance: CANNABIDIOL
     Indication: Epilepsy
     Dosage: 0.9ML IN AM 0.5ML AT 2 PM  0.9ML EACH EVENING
     Route: 048
  2. EPIDIOLEX [Suspect]
     Active Substance: CANNABIDIOL
     Route: 048

REACTIONS (1)
  - Hospitalisation [Not Recovered/Not Resolved]

NARRATIVE: CASE EVENT DATE: 20220627
